FAERS Safety Report 14527594 (Version 1)
Quarter: 2018Q1

REPORT INFORMATION
  Report Type: Spontaneous
  Country: US (occurrence: US)
  Receive Date: 20180213
  Receipt Date: 20180213
  Transmission Date: 20180509
  Serious: No
  Sender: FDA-Public Use
  Company Number: US-PFIZER INC-2018063025

PATIENT
  Age: 34 Year
  Sex: Female

DRUGS (1)
  1. ESTROGENS ESTERIFIED [Suspect]
     Active Substance: ESTROGENS, ESTERIFIED
     Dosage: UNK

REACTIONS (1)
  - Mood swings [Unknown]
